FAERS Safety Report 24705685 (Version 2)
Quarter: 2025Q4

REPORT INFORMATION
  Report Type: Spontaneous
  Country: EU (occurrence: EU)
  Receive Date: 20241206
  Receipt Date: 20251009
  Transmission Date: 20260118
  Serious: Yes (Other)
  Sender: RANBAXY
  Company Number: EU-SUN PHARMACEUTICAL INDUSTRIES LTD-2021R1-278979

PATIENT
  Sex: Female
  Weight: 16.6 kg

DRUGS (25)
  1. METHOTREXATE [Suspect]
     Active Substance: METHOTREXATE
     Indication: Product used for unknown indication
     Dosage: UNK
     Route: 065
  2. METHYLPREDNISOLONE [Suspect]
     Active Substance: METHYLPREDNISOLONE
     Indication: Prophylaxis against graft versus host disease
     Dosage: UNK
     Route: 065
  3. METHYLPREDNISOLONE [Suspect]
     Active Substance: METHYLPREDNISOLONE
     Indication: Still^s disease
  4. MYCOPHENOLATE MOFETIL [Suspect]
     Active Substance: MYCOPHENOLATE MOFETIL
     Indication: Prophylaxis against graft versus host disease
     Dosage: UNK
     Route: 065
  5. PREDNISOLONE [Suspect]
     Active Substance: PREDNISOLONE
     Indication: Still^s disease
     Dosage: 1 MILLIGRAM/KILOGRAM, DAILY/TAPERED
     Route: 065
  6. ALEMTUZUMAB [Suspect]
     Active Substance: ALEMTUZUMAB
     Indication: Bone marrow conditioning regimen
     Dosage: 0.5 MILLIGRAM/KILOGRAM
     Route: 065
  7. ALEMTUZUMAB [Suspect]
     Active Substance: ALEMTUZUMAB
     Indication: Still^s disease
  8. ANAKINRA [Suspect]
     Active Substance: ANAKINRA
     Indication: Still^s disease
     Dosage: UNK
     Route: 065
  9. BUSULFAN [Suspect]
     Active Substance: BUSULFAN
     Indication: Bone marrow conditioning regimen
     Dosage: AUC OF 25638 MICROM/MIN.
     Route: 065
  10. CYCLOPHOSPHAMIDE [Suspect]
     Active Substance: CYCLOPHOSPHAMIDE
     Indication: Prophylaxis against graft versus host disease
     Dosage: 50 MILLIGRAM/KILOGRAM
     Route: 065
  11. CYCLOSPORINE [Suspect]
     Active Substance: CYCLOSPORINE
     Indication: Prophylaxis against graft versus host disease
     Dosage: UNK
     Route: 065
  12. FLUDARABINE [Suspect]
     Active Substance: FLUDARABINE PHOSPHATE
     Indication: Bone marrow conditioning regimen
     Dosage: UNK
     Route: 065
  13. FLUDARABINE [Suspect]
     Active Substance: FLUDARABINE PHOSPHATE
     Dosage: 160 MILLIGRAM/SQ. METER
     Route: 065
  14. INDOMETHACIN [Suspect]
     Active Substance: INDOMETHACIN
     Indication: Bone marrow conditioning regimen
     Dosage: 25 MILLIGRAM/SQ. METER, QD
     Route: 065
  15. INDOMETHACIN [Suspect]
     Active Substance: INDOMETHACIN
     Indication: Still^s disease
  16. INFLIXIMAB [Suspect]
     Active Substance: INFLIXIMAB
     Indication: Graft versus host disease in gastrointestinal tract
     Dosage: 75 MILLIGRAM/4 WEEKS
     Route: 065
  17. PENICILLIN V POTASSIUM [Suspect]
     Active Substance: PENICILLIN V POTASSIUM
     Indication: Prophylaxis
     Dosage: UNK
     Route: 065
  18. RITUXIMAB [Suspect]
     Active Substance: RITUXIMAB
     Indication: Still^s disease
     Dosage: 375 MILLIGRAM/SQ. METER
     Route: 065
  19. THALIDOMIDE [Suspect]
     Active Substance: THALIDOMIDE
     Indication: Still^s disease
     Dosage: 50 MILLIGRAM, DAILY
     Route: 065
  20. ADALIMUMAB [Suspect]
     Active Substance: ADALIMUMAB
     Indication: Still^s disease
     Dosage: UNK
     Route: 065
  21. ACYCLOVIR [Concomitant]
     Active Substance: ACYCLOVIR
     Indication: Product used for unknown indication
     Dosage: UNK
     Route: 065
  22. HYDROCORTISONE [Concomitant]
     Active Substance: HYDROCORTISONE
     Indication: Product used for unknown indication
     Dosage: UNK
     Route: 065
  23. CANAKINUMAB [Concomitant]
     Active Substance: CANAKINUMAB
     Indication: Still^s disease
     Dosage: UNK
     Route: 065
  24. CYCLOPHOSPHAMIDE [Concomitant]
     Active Substance: CYCLOPHOSPHAMIDE
     Indication: Prophylaxis against graft versus host disease
     Dosage: 50 MILLIGRAM/KILOGRAM/DAY 3 AND 4
     Route: 065
  25. TOCILIZUMAB [Concomitant]
     Active Substance: TOCILIZUMAB
     Indication: Still^s disease
     Dosage: UNK
     Route: 065

REACTIONS (41)
  - Drug ineffective [Unknown]
  - Varicella zoster virus infection [Unknown]
  - Nodular regenerative hyperplasia [Unknown]
  - Bacterial sepsis [Unknown]
  - Infection [Unknown]
  - Congenital aplasia [Recovered/Resolved]
  - Immune thrombocytopenia [Recovering/Resolving]
  - Impaired quality of life [Unknown]
  - Hypertension [Unknown]
  - Cellulitis staphylococcal [Unknown]
  - Herpes zoster infection neurological [Unknown]
  - Obliterative bronchiolitis [Recovered/Resolved]
  - Graft versus host disease in skin [Recovering/Resolving]
  - Still^s disease [Recovering/Resolving]
  - Lung disorder [Recovered/Resolved]
  - Toxicity to various agents [Unknown]
  - Condition aggravated [Unknown]
  - Autoimmune thyroiditis [Unknown]
  - Joint effusion [Recovered/Resolved]
  - Hepatic cytolysis [Unknown]
  - Arthralgia [Unknown]
  - Osteopenia [Unknown]
  - Red blood cell sedimentation rate increased [Unknown]
  - C-reactive protein increased [Unknown]
  - Hypothyroidism [Unknown]
  - Cellulitis staphylococcal [Unknown]
  - Cushingoid [Unknown]
  - Focal nodular hyperplasia [Unknown]
  - Secondary adrenocortical insufficiency [Unknown]
  - Acute graft versus host disease in skin [Recovering/Resolving]
  - Ill-defined disorder [Unknown]
  - Actinomycotic sepsis [Unknown]
  - Graft versus host disease in gastrointestinal tract [Recovered/Resolved]
  - Graft versus host disease in gastrointestinal tract [Recovered/Resolved]
  - Thrombocytopenia [Recovering/Resolving]
  - Vitiligo [Unknown]
  - Pulmonary function test abnormal [Recovered/Resolved]
  - Herpes zoster [Unknown]
  - Clostridium difficile colitis [Recovered/Resolved]
  - Growth retardation [Recovering/Resolving]
  - Inflammation [Unknown]
